FAERS Safety Report 16903838 (Version 1)
Quarter: 2019Q4

REPORT INFORMATION
  Report Type: Spontaneous
  Country: US (occurrence: US)
  Receive Date: 20191010
  Receipt Date: 20191010
  Transmission Date: 20200122
  Serious: Yes (Other)
  Sender: FDA-Public Use
  Company Number: US-INCYTE CORPORATION-2019IN010038

PATIENT

DRUGS (4)
  1. JAKAFI [Suspect]
     Active Substance: RUXOLITINIB
     Indication: MYELOFIBROSIS
     Dosage: 20 MILLIGRAM
     Route: 065
  2. JAKAFI [Suspect]
     Active Substance: RUXOLITINIB
     Dosage: 5 MILLIGRAM, BID
     Route: 065
  3. HYDREA [Suspect]
     Active Substance: HYDROXYUREA
     Dosage: 1500, UNK
     Route: 065
  4. HYDREA [Suspect]
     Active Substance: HYDROXYUREA
     Dosage: 1000, UNK

REACTIONS (3)
  - White blood cell count increased [Unknown]
  - Urinary tract infection [Unknown]
  - Thrombocytopenia [Unknown]
